FAERS Safety Report 9753341 (Version 2)
Quarter: 2013Q4

REPORT INFORMATION
  Report Type: Spontaneous
  Country: US (occurrence: US)
  Receive Date: 20131213
  Receipt Date: 20131216
  Transmission Date: 20140711
  Serious: Yes (Hospitalization, Other)
  Sender: FDA-Public Use
  Company Number: US-TEVA-405171USA

PATIENT
  Age: 21 Year
  Sex: Female

DRUGS (1)
  1. PARAGARD 380A [Suspect]
     Indication: CONTRACEPTION
     Route: 015
     Dates: start: 20110308, end: 20130513

REACTIONS (5)
  - Ectopic pregnancy with contraceptive device [Recovering/Resolving]
  - Drug ineffective [Unknown]
  - Vaginal haemorrhage [Unknown]
  - Abdominal pain upper [Unknown]
  - Pelvic pain [Unknown]
